FAERS Safety Report 16469420 (Version 4)
Quarter: 2019Q4

REPORT INFORMATION
  Report Type: Spontaneous
  Country: US (occurrence: US)
  Receive Date: 20190624
  Receipt Date: 20191210
  Transmission Date: 20200122
  Serious: Yes (Other)
  Sender: FDA-Public Use
  Company Number: US-SA-2019SA163643

PATIENT
  Age: 70 Year
  Sex: Female

DRUGS (3)
  1. TOUJEO [Suspect]
     Active Substance: INSULIN GLARGINE
     Indication: TYPE 2 DIABETES MELLITUS
     Dosage: 23 U, QD
     Route: 065
  2. HUMALOG [Concomitant]
     Active Substance: INSULIN LISPRO
     Dosage: SHE TAKES 22 U AND 18 U.
     Route: 065
  3. TOUJEO [Suspect]
     Active Substance: INSULIN GLARGINE
     Dosage: UNK UNK, BID (24 U QAM + 34)
     Route: 065
     Dates: start: 201904

REACTIONS (7)
  - Device operational issue [Unknown]
  - Blood pressure increased [Unknown]
  - Vision blurred [Unknown]
  - Product dose omission [Unknown]
  - Inappropriate schedule of product administration [Unknown]
  - Rheumatoid arthritis [Unknown]
  - Blood glucose increased [Unknown]
